FAERS Safety Report 17635357 (Version 2)
Quarter: 2022Q1

REPORT INFORMATION
  Report Type: Spontaneous
  Country: CH (occurrence: CH)
  Receive Date: 20200407
  Receipt Date: 20220131
  Transmission Date: 20220423
  Serious: Yes (Death)
  Sender: FDA-Public Use
  Company Number: CH-SM-2020-11940

PATIENT
  Age: 70 Year
  Sex: Male

DRUGS (16)
  1. SULFAMETHOXAZOLE\TRIMETHOPRIM [Interacting]
     Active Substance: SULFAMETHOXAZOLE\TRIMETHOPRIM
     Indication: Infection prophylaxis
     Dosage: SULFAMETHOXAZOLE / TIOMETHOPRIM = 800/160 MG
     Route: 048
  2. LAMIVUDINE [Interacting]
     Active Substance: LAMIVUDINE
     Indication: HIV infection
     Route: 048
     Dates: start: 201905, end: 20190920
  3. ZIAGEN [Concomitant]
     Active Substance: ABACAVIR SULFATE
     Dates: end: 20190920
  4. TIVICAY [Concomitant]
     Active Substance: DOLUTEGRAVIR SODIUM
  5. PREDNISONE [Concomitant]
     Active Substance: PREDNISONE
  6. MYFORTIC [Concomitant]
     Active Substance: MYCOPHENOLATE SODIUM
  7. PROGRAF [Concomitant]
     Active Substance: TACROLIMUS
  8. VALCYTE [Concomitant]
     Active Substance: VALGANCICLOVIR HYDROCHLORIDE
  9. ASPIRIN [Concomitant]
     Active Substance: ASPIRIN
  10. Physiotens mite [Concomitant]
  11. TORSEMIDE [Concomitant]
     Active Substance: TORSEMIDE
  12. BISOPROLOL FUMARATE [Concomitant]
     Active Substance: BISOPROLOL FUMARATE
  13. AMLODIPINE BESYLATE [Concomitant]
     Active Substance: AMLODIPINE BESYLATE
  14. PANTOZOL [Concomitant]
     Active Substance: PANTOPRAZOLE SODIUM
  15. SODIUM PICOSULFATE [Concomitant]
     Active Substance: SODIUM PICOSULFATE
  16. VITAMIN D3 [Concomitant]
     Active Substance: CHOLECALCIFEROL

REACTIONS (3)
  - Lactic acidosis [Fatal]
  - Drug interaction [Fatal]
  - Inadequate haemodialysis [Fatal]

NARRATIVE: CASE EVENT DATE: 20190901
